FAERS Safety Report 14401374 (Version 4)
Quarter: 2018Q2

REPORT INFORMATION
  Report Type: Report from Study
  Country: JP (occurrence: JP)
  Receive Date: 20180117
  Receipt Date: 20180403
  Transmission Date: 20180711
  Serious: Yes (Death, Other)
  Sender: FDA-Public Use
  Company Number: PHJP2017JP016652

PATIENT
  Age: 62 Year
  Sex: Female

DRUGS (20)
  1. BAKTAR [Concomitant]
     Active Substance: SULFAMETHOXAZOLE\TRIMETHOPRIM
     Indication: PRODUCT USED FOR UNKNOWN INDICATION
     Dosage: 1 DF, QW3
     Route: 048
  2. NOVAMIN [Concomitant]
     Indication: PRODUCT USED FOR UNKNOWN INDICATION
     Dosage: 15 MG, QD
     Route: 048
  3. CALTAN [Concomitant]
     Active Substance: CALCIUM CARBONATE
     Indication: PRODUCT USED FOR UNKNOWN INDICATION
     Dosage: 3000 MG, QD
     Route: 048
  4. MEILAX [Concomitant]
     Active Substance: ETHYL LOFLAZEPATE
     Indication: RESTLESSNESS
  5. NEXIUM [Concomitant]
     Active Substance: ESOMEPRAZOLE MAGNESIUM
     Indication: PRODUCT USED FOR UNKNOWN INDICATION
     Dosage: 20 MG, QD
     Route: 048
     Dates: end: 20160107
  6. CALFINA [Concomitant]
     Active Substance: ALFACALCIDOL
     Indication: PRODUCT USED FOR UNKNOWN INDICATION
     Dosage: 0.5 UG, QD
     Route: 048
  7. FARYDAK [Suspect]
     Active Substance: PANOBINOSTAT
     Dosage: 20 MG, TID (5 DOSES (20 MG THREE TIMES, 15 MG ONCE AND 10 MG ONCE) PER CYCLE)
     Route: 048
     Dates: start: 20160112, end: 20160214
  8. BROTIZOLAM [Concomitant]
     Active Substance: BROTIZOLAM
     Indication: INSOMNIA
     Dosage: 0.25 MG, PRN
     Route: 048
  9. FARYDAK [Suspect]
     Active Substance: PANOBINOSTAT
     Dosage: 10 MG, QD
     Route: 048
     Dates: start: 20160112, end: 20160214
  10. VICCLOX [Concomitant]
     Active Substance: ACYCLOVIR SODIUM
     Indication: PRODUCT USED FOR UNKNOWN INDICATION
     Dosage: 200 MG, QD
     Route: 048
  11. FARYDAK [Suspect]
     Active Substance: PANOBINOSTAT
     Dosage: 15 MG, QD, (5 DOSES (20 MG THREE TIMES, 15 MG ONCE AND 10 MG ONCE) PER CYCLE)
     Route: 048
     Dates: start: 20160112, end: 20160214
  12. KYTRIL [Concomitant]
     Active Substance: GRANISETRON HYDROCHLORIDE
     Indication: PRODUCT USED FOR UNKNOWN INDICATION
     Dosage: 1 MG, QD
     Route: 048
     Dates: start: 20151218
  13. ZOLPIDEM [Concomitant]
     Active Substance: ZOLPIDEM\ZOLPIDEM TARTRATE
     Indication: INSOMNIA
     Dosage: 5 MG, PRN
     Route: 048
  14. LENADEX [Suspect]
     Active Substance: DEXAMETHASONE ACETATE
     Indication: PLASMA CELL MYELOMA
     Dosage: UNK
     Route: 065
     Dates: start: 20151218, end: 20160214
  15. MEILAX [Concomitant]
     Active Substance: ETHYL LOFLAZEPATE
     Indication: INSOMNIA
     Dosage: 1 TO 2 MG, PRN
     Route: 048
     Dates: end: 20160127
  16. FARYDAK [Suspect]
     Active Substance: PANOBINOSTAT
     Indication: PLASMA CELL MYELOMA
     Dosage: 20 MG, QD, (6 DOSES PER CYCLE)
     Route: 048
     Dates: start: 20151218, end: 20160111
  17. BORTEZOMIB [Suspect]
     Active Substance: BORTEZOMIB
     Indication: PLASMA CELL MYELOMA
     Dosage: 1.3 MG/M2, QW2
     Route: 058
     Dates: start: 20151218, end: 20160214
  18. OXYCONTIN [Suspect]
     Active Substance: OXYCODONE HYDROCHLORIDE
     Indication: PLASMA CELL MYELOMA
     Dosage: 25 MG, QD
     Route: 048
  19. AMLODIPINE BESILATE [Concomitant]
     Active Substance: AMLODIPINE BESYLATE
     Indication: HYPERTENSION
     Dosage: 7.5 MG, QD
     Route: 048
     Dates: end: 20151231
  20. OXINORM (MINERALS\VITAMINS) [Concomitant]
     Active Substance: MINERALS\VITAMINS
     Indication: PLASMA CELL MYELOMA
     Dosage: 5 MG, PRN
     Route: 048

REACTIONS (20)
  - Anaemia [Recovering/Resolving]
  - Hyponatraemia [Recovering/Resolving]
  - Hypophagia [Unknown]
  - Diarrhoea [Recovered/Resolved]
  - Concomitant disease aggravated [Recovered/Resolved]
  - Malaise [Recovering/Resolving]
  - Restlessness [Recovering/Resolving]
  - Neutrophil count decreased [Recovered/Resolved]
  - Blood creatinine increased [Recovered/Resolved]
  - Hypophosphataemia [Recovered/Resolved]
  - White blood cell count decreased [Recovered/Resolved]
  - Hypocalcaemia [Recovering/Resolving]
  - Platelet count decreased [Not Recovered/Not Resolved]
  - Nausea [Recovered/Resolved]
  - Alanine aminotransferase increased [Recovered/Resolved]
  - Hypokalaemia [Recovered/Resolved]
  - Death [Fatal]
  - Constipation [Recovered/Resolved]
  - Vomiting [Recovered/Resolved]
  - Aspartate aminotransferase increased [Recovered/Resolved]

NARRATIVE: CASE EVENT DATE: 20151221
